FAERS Safety Report 7253496-4 (Version None)
Quarter: 2011Q1

REPORT INFORMATION
  Report Type: 
  Country: None (occurrence: None)
  Receive Date: 20110129
  Receipt Date: 20100215
  Transmission Date: 20110831
  Serious: No
  Sender: FDA-Public Use
  Company Number: US-ABBOTT-10P-163-0626847-00

PATIENT
  Sex: Male

DRUGS (5)
  1. HUMIRA [Suspect]
     Indication: PSORIASIS
     Dosage: 80 DAY 1 28 JAN 2010 40 MG DAY 8 40 MG EOW 2 WEEKS LATER
     Dates: start: 20100128, end: 20100128
  2. HUMIRA [Suspect]
     Dates: start: 20100206, end: 20100206
  3. LOZOL [Concomitant]
     Indication: HYPERTENSION
  4. ALLEGRA [Concomitant]
     Indication: HYPERSENSITIVITY
  5. VASOTEC [Concomitant]
     Indication: HYPERTENSION

REACTIONS (1)
  - JOINT SWELLING [None]
